FAERS Safety Report 25626461 (Version 1)
Quarter: 2025Q3

REPORT INFORMATION
  Report Type: Report from Study
  Country: US (occurrence: US)
  Receive Date: 20250731
  Receipt Date: 20250731
  Transmission Date: 20251020
  Serious: Yes (Hospitalization)
  Sender: ROCHE
  Company Number: US-ROCHE-10000350678

PATIENT

DRUGS (1)
  1. RITUXIMAB [Suspect]
     Active Substance: RITUXIMAB
     Indication: Cold type haemolytic anaemia
     Route: 065

REACTIONS (3)
  - Sepsis [Unknown]
  - Pneumonia [Unknown]
  - Off label use [Unknown]
